FAERS Safety Report 12441058 (Version 14)
Quarter: 2023Q4

REPORT INFORMATION
  Report Type: Other
  Country: CA (occurrence: CA)
  Receive Date: 20160607
  Receipt Date: 20231013
  Transmission Date: 20240109
  Serious: Yes (Other)
  Sender: FDA-Public Use
  Company Number: CA-002147023-PHHY2016CA037690

PATIENT
  Age: 48 Year
  Sex: Female
  Weight: 110 kg

DRUGS (19)
  1. XOLAIR [Suspect]
     Active Substance: OMALIZUMAB
     Indication: Asthma
     Route: 058
     Dates: start: 20160316
  2. XOLAIR [Suspect]
     Active Substance: OMALIZUMAB
     Route: 058
     Dates: start: 20160331
  3. XOLAIR [Suspect]
     Active Substance: OMALIZUMAB
     Route: 058
     Dates: start: 20161026
  4. XOLAIR [Suspect]
     Active Substance: OMALIZUMAB
     Route: 058
     Dates: start: 20200317
  5. XOLAIR [Suspect]
     Active Substance: OMALIZUMAB
     Route: 058
  6. XOLAIR [Suspect]
     Active Substance: OMALIZUMAB
     Route: 058
  7. XOLAIR [Suspect]
     Active Substance: OMALIZUMAB
     Route: 058
     Dates: start: 20211012
  8. XOLAIR [Suspect]
     Active Substance: OMALIZUMAB
     Route: 058
     Dates: start: 20211221
  9. XOLAIR [Suspect]
     Active Substance: OMALIZUMAB
     Route: 058
     Dates: start: 20220329
  10. XOLAIR [Suspect]
     Active Substance: OMALIZUMAB
     Route: 058
  11. ADVAIR HFA [Concomitant]
     Active Substance: FLUTICASONE PROPIONATE\SALMETEROL XINAFOATE
     Indication: Product used for unknown indication
     Route: 065
  12. QVAR [Concomitant]
     Active Substance: BECLOMETHASONE DIPROPIONATE
     Indication: Product used for unknown indication
     Dosage: UNK
     Route: 065
  13. SINGULAIR [Concomitant]
     Active Substance: MONTELUKAST SODIUM
     Indication: Product used for unknown indication
     Route: 065
  14. VENTOLIN [Concomitant]
     Active Substance: ALBUTEROL SULFATE
     Indication: Product used for unknown indication
  15. SYNTHROID [Concomitant]
     Active Substance: LEVOTHYROXINE SODIUM
     Indication: Product used for unknown indication
     Dosage: UNK
  16. PERINDOPRIL [Concomitant]
     Active Substance: PERINDOPRIL
     Indication: Product used for unknown indication
     Dosage: UNK
  17. INVOKANA [Concomitant]
     Active Substance: CANAGLIFLOZIN
     Indication: Product used for unknown indication
     Dosage: UNK
  18. EPIPEN [Concomitant]
     Active Substance: EPINEPHRINE
     Indication: Product used for unknown indication
     Dosage: UNK
  19. ALBUTEROL [Concomitant]
     Active Substance: ALBUTEROL
     Indication: Product used for unknown indication
     Route: 065

REACTIONS (27)
  - Anaphylactic reaction [Unknown]
  - Thyrotoxic crisis [Unknown]
  - Haematoma [Unknown]
  - Hypoaesthesia [Unknown]
  - Chills [Unknown]
  - Yawning [Unknown]
  - Migraine [Not Recovered/Not Resolved]
  - Cough [Unknown]
  - Oropharyngeal pain [Unknown]
  - Heart rate increased [Unknown]
  - Dizziness [Unknown]
  - Nasopharyngitis [Unknown]
  - Headache [Unknown]
  - Blood pressure increased [Unknown]
  - Tenderness [Not Recovered/Not Resolved]
  - Pulse abnormal [Unknown]
  - Blister [Unknown]
  - Erythema [Recovering/Resolving]
  - Soft tissue injury [Unknown]
  - Thyroid disorder [Unknown]
  - Weight decreased [Unknown]
  - Fatigue [Unknown]
  - Flushing [Unknown]
  - Urticaria [Recovered/Resolved]
  - Feeling hot [Not Recovered/Not Resolved]
  - Nephrolithiasis [Unknown]
  - Pyelonephritis [Unknown]

NARRATIVE: CASE EVENT DATE: 20160316
